FAERS Safety Report 5264215-5 (Version None)
Quarter: 2007Q1

REPORT INFORMATION
  Report Type: 
  Country: None (occurrence: None)
  Receive Date: 20070313
  Receipt Date: 20070301
  Transmission Date: 20070707
  Serious: Yes (Death)
  Sender: FDA-Public Use
  Company Number: FR-PFIZER INC-2007016725

PATIENT
  Age: 63 Year
  Sex: Male

DRUGS (5)
  1. AMLODIPINE [Suspect]
     Indication: MYOCARDIAL INFARCTION
     Route: 048
  2. KARDEGIC [Suspect]
     Indication: MYOCARDIAL INFARCTION
     Route: 048
  3. PERINDOPRIL ERBUMINE [Suspect]
     Indication: MYOCARDIAL INFARCTION
     Route: 048
  4. PRAVASTATIN [Suspect]
     Indication: DYSLIPIDAEMIA
     Route: 048
  5. PLAVIX [Suspect]
     Indication: MYOCARDIAL INFARCTION
     Dosage: TEXT:1DF-FREQ:FREQUENCY: DAILY
     Route: 048

REACTIONS (2)
  - HAEMOLYSIS [None]
  - THROMBOCYTOPENIA [None]
